FAERS Safety Report 19069027 (Version 1)
Quarter: 2021Q1

REPORT INFORMATION
  Report Type: Spontaneous
  Country: FR (occurrence: FR)
  Receive Date: 20210329
  Receipt Date: 20210329
  Transmission Date: 20210420
  Serious: Yes (Other)
  Sender: FDA-Public Use
  Company Number: FR-009507513-2101FRA001472

PATIENT
  Age: 51 Year
  Sex: Male
  Weight: 88 kg

DRUGS (2)
  1. BIKTARVY [Suspect]
     Active Substance: BICTEGRAVIR SODIUM\EMTRICITABINE\TENOFOVIR ALAFENAMIDE FUMARATE
     Indication: HIV INFECTION
     Dosage: NORMAL DOSE
     Route: 065
     Dates: start: 2019
  2. MK?1439 [Suspect]
     Active Substance: DORAVIRINE
     Indication: HIV INFECTION
     Dosage: UNK
     Route: 065
     Dates: start: 2020

REACTIONS (4)
  - Off label use [Not Recovered/Not Resolved]
  - Drug ineffective [Unknown]
  - Genotype drug resistance test positive [Unknown]
  - Viral load abnormal [Not Recovered/Not Resolved]

NARRATIVE: CASE EVENT DATE: 2020
